FAERS Safety Report 5487423-7 (Version None)
Quarter: 2007Q4

REPORT INFORMATION
  Report Type: 
  Country: None (occurrence: None)
  Receive Date: 20071016
  Receipt Date: 20071004
  Transmission Date: 20080405
  Serious: Yes (Hospitalization, Other)
  Sender: FDA-Public Use
  Company Number: US-PFIZER INC-2006120152

PATIENT
  Sex: Male
  Weight: 83 kg

DRUGS (4)
  1. BEXTRA [Suspect]
     Indication: PAIN
  2. VIOXX [Suspect]
     Indication: OSTEOARTHRITIS
     Route: 048
     Dates: start: 20000201, end: 20040917
  3. TOPROL-XL [Concomitant]
  4. TYLENOL (CAPLET) [Concomitant]
     Dates: start: 20040201

REACTIONS (3)
  - CARDIAC ARREST [None]
  - DEEP VEIN THROMBOSIS [None]
  - MYOCARDIAL INFARCTION [None]
